FAERS Safety Report 4491698-0 (Version None)
Quarter: 2004Q4

REPORT INFORMATION
  Report Type: 
  Country: None (occurrence: None)
  Receive Date: 20041103
  Receipt Date: 20040609
  Transmission Date: 20050328
  Serious: Yes (Hospitalization)
  Sender: FDA-Public Use
  Company Number: CH-ROCHE-370364

PATIENT
  Age: 47 Year
  Sex: Male
  Weight: 41 kg

DRUGS (3)
  1. PEG-INTERFERON ALFA 2A (RO 25-8310) [Suspect]
     Route: 058
     Dates: start: 20031031, end: 20040507
  2. RIBAVIRIN [Suspect]
     Route: 048
     Dates: start: 20031031, end: 20040507
  3. CITALOPRAM [Concomitant]
     Dates: start: 20040219

REACTIONS (3)
  - ANAEMIA [None]
  - MALAISE [None]
  - WEIGHT DECREASED [None]
